FAERS Safety Report 13319733 (Version 2)
Quarter: 2018Q1

REPORT INFORMATION
  Report Type: Spontaneous
  Country: US (occurrence: US)
  Receive Date: 20170309
  Receipt Date: 20180223
  Transmission Date: 20180508
  Serious: No
  Sender: FDA-Public Use
  Company Number: US-TEVA-728511ACC

PATIENT
  Sex: Male

DRUGS (1)
  1. BUSPIRONE [Suspect]
     Active Substance: BUSPIRONE HYDROCHLORIDE
     Dosage: 30 MILLIGRAM DAILY;
     Route: 065
     Dates: start: 20161224, end: 201701

REACTIONS (3)
  - Nightmare [Recovered/Resolved]
  - Insomnia [Unknown]
  - Fatigue [Recovered/Resolved]
